FAERS Safety Report 9025911 (Version 4)
Quarter: 2013Q1

REPORT INFORMATION
  Report Type: Report from Study
  Country: DE (occurrence: DE)
  Receive Date: 20130122
  Receipt Date: 20130312
  Transmission Date: 20140127
  Serious: Yes (Other)
  Sender: FDA-Public Use
  Company Number: DE-NAPPMUNDI-DEU-2013-0010255

PATIENT
  Age: 47 Year
  Sex: Male
  Weight: 76.2 kg

DRUGS (11)
  1. OXYCODONE HCL/NALOXONE HCL CR TAB [Suspect]
     Indication: BACK PAIN
     Dosage: 180/90 MG, DAILY
     Route: 048
     Dates: start: 20121213
  2. OXYCODONE HCL/NALOXONE HCL CR TAB [Suspect]
     Indication: NECK PAIN
  3. OXYCODONE HCL/NALOXONE HCL CR TAB [Suspect]
     Indication: PROCEDURAL PAIN
  4. OXYCODONE HCL [Suspect]
     Indication: BACK PAIN
     Dosage: 20 MG, PRN
     Route: 048
     Dates: start: 20121018, end: 20121219
  5. OXYCODONE HCL IR CAPSULES [Suspect]
     Indication: NECK PAIN
     Dosage: 5 MG, PRN
     Route: 048
     Dates: start: 20121018, end: 20121219
  6. OXYCODONE HCL [Suspect]
     Indication: PROCEDURAL PAIN
  7. OXYGESIC [Suspect]
     Indication: BACK PAIN
     Dosage: 5 MG, PRN
     Route: 048
     Dates: start: 20121220, end: 20130109
  8. OXYGESIC [Suspect]
     Indication: NECK PAIN
     Dosage: 20 MG, PRN
     Route: 048
     Dates: start: 20121220
  9. OXYGESIC [Suspect]
     Indication: PROCEDURAL PAIN
  10. ACC [Concomitant]
     Indication: CORONARY ARTERY DISEASE
     Dosage: 100 MG, UNK
     Route: 048
     Dates: start: 2009
  11. RAMIPRIL [Concomitant]
     Indication: CORONARY ARTERY DISEASE
     Dosage: 20 MG, UNK
     Route: 048
     Dates: start: 2009

REACTIONS (1)
  - Sinus bradycardia [Recovered/Resolved]
